FAERS Safety Report 4262370-7 (Version None)
Quarter: 2004Q1

REPORT INFORMATION
  Report Type: 
  Country: None (occurrence: None)
  Receive Date: 20040102
  Receipt Date: 20031209
  Transmission Date: 20041129
  Serious: Yes (Other)
  Sender: FDA-Public Use
  Company Number: PHBS2003JP13906

PATIENT
  Age: 72 Year
  Sex: Female

DRUGS (11)
  1. DIOVAN [Suspect]
     Indication: HYPERTENSION
     Dosage: 40 MG/DAY
     Route: 048
     Dates: start: 20030409
  2. DIOVAN [Suspect]
     Dosage: 80 MG/DAY
     Route: 048
     Dates: end: 20031126
  3. SIGMART [Concomitant]
     Dosage: 15 MG/DAY
     Route: 048
     Dates: start: 20011212
  4. WARFARIN SODIUM [Concomitant]
     Dosage: 2 MG/DAY
     Route: 048
     Dates: start: 20011212
  5. ASPIRIN [Concomitant]
     Dosage: 100 MG/DAY
     Route: 048
     Dates: start: 20011212
  6. CYTOTEC [Concomitant]
     Dosage: 600 MG/DAY
     Route: 048
     Dates: start: 20011212
  7. TAKEPRON [Concomitant]
     Dosage: 15 MG/DAY
     Route: 048
     Dates: start: 20011212
  8. JUVELA NICOTINATE [Concomitant]
     Dosage: 600 MG/DAY
     Route: 048
     Dates: start: 20011212
  9. ETODOLAC [Concomitant]
     Dosage: 400 MG/DAY
     Route: 048
     Dates: start: 20011212
  10. DIAZEPAM [Concomitant]
     Dosage: 2 MG/DAY
     Route: 048
     Dates: start: 20011212
  11. HALCION [Concomitant]
     Dosage: 0.25 MG/DAY
     Route: 048
     Dates: start: 20011212

REACTIONS (2)
  - INTERSTITIAL LUNG DISEASE [None]
  - TREATMENT NONCOMPLIANCE [None]
